FAERS Safety Report 6431223-8 (Version None)
Quarter: 2009Q4

REPORT INFORMATION
  Report Type: 
  Country: None (occurrence: None)
  Receive Date: 20091106
  Receipt Date: 20091027
  Transmission Date: 20100525
  Serious: Yes (Hospitalization)
  Sender: FDA-Public Use
  Company Number: RO-ABBOTT-09P-135-0605706-00

PATIENT
  Sex: Female

DRUGS (1)
  1. HUMIRA [Suspect]
     Indication: RHEUMATOID ARTHRITIS
     Route: 058
     Dates: start: 20090501

REACTIONS (4)
  - ASTHENIA [None]
  - DYSPNOEA [None]
  - MALAISE [None]
  - NAUSEA [None]
